FAERS Safety Report 25321734 (Version 1)
Quarter: 2025Q2

REPORT INFORMATION
  Report Type: Spontaneous
  Country: ES (occurrence: ES)
  Receive Date: 20250516
  Receipt Date: 20250516
  Transmission Date: 20250717
  Serious: Yes (Other)
  Sender: TEVA
  Company Number: None

PATIENT
  Age: 50 Year
  Sex: Male
  Weight: 89.6 kg

DRUGS (3)
  1. ENALAPRIL\HYDROCHLOROTHIAZIDE [Suspect]
     Active Substance: ENALAPRIL\HYDROCHLOROTHIAZIDE
     Indication: Hypertension
     Dosage: 20 MG/12.5 MG
     Route: 048
     Dates: start: 20240617, end: 20250411
  2. ENALAPRIL [Suspect]
     Active Substance: ENALAPRIL
     Indication: Hypertension
     Route: 048
     Dates: start: 20240409, end: 20240616
  3. ENALAPRIL [Suspect]
     Active Substance: ENALAPRIL
     Indication: Hypertension
     Route: 048
     Dates: start: 20231217, end: 20240408

REACTIONS (2)
  - Libido decreased [Unknown]
  - Condition aggravated [Unknown]

NARRATIVE: CASE EVENT DATE: 20240601
